FAERS Safety Report 21101619 (Version 1)
Quarter: 2022Q3

REPORT INFORMATION
  Report Type: Spontaneous
  Country: US (occurrence: None)
  Receive Date: 20220719
  Receipt Date: 20220719
  Transmission Date: 20221026
  Serious: No
  Sender: FDA-Public Use
  Company Number: None

PATIENT

DRUGS (7)
  1. FERROUS SULFATE [Suspect]
     Active Substance: FERROUS SULFATE
  2. ROSUVASTATIN CALCIUM [Suspect]
     Active Substance: ROSUVASTATIN CALCIUM
  3. AMBRISENTAN [Suspect]
     Active Substance: AMBRISENTAN
  4. MISOPROSTOL [Suspect]
     Active Substance: MISOPROSTOL
  5. DEVICE [Suspect]
     Active Substance: DEVICE
  6. DEVICE [Suspect]
     Active Substance: DEVICE
  7. DEVICE [Suspect]
     Active Substance: DEVICE

REACTIONS (4)
  - Product barcode issue [None]
  - Wrong product stored [None]
  - Product communication issue [None]
  - Device computer issue [None]
